FAERS Safety Report 6974878-1 (Version None)
Quarter: 2010Q3

REPORT INFORMATION
  Report Type: 
  Country: None (occurrence: None)
  Receive Date: 20100909
  Receipt Date: 20090113
  Transmission Date: 20110219
  Serious: Yes (Other)
  Sender: FDA-Public Use
  Company Number: US-WYE-H07399108

PATIENT
  Age: 70 Year
  Sex: Female
  Weight: 61.29 kg

DRUGS (5)
  1. PRISTIQ [Suspect]
     Indication: MAJOR DEPRESSION
     Route: 048
     Dates: start: 20081101, end: 20080101
  2. PRISTIQ [Suspect]
     Route: 048
     Dates: start: 20080101, end: 20080101
  3. PRISTIQ [Suspect]
     Route: 048
     Dates: start: 20080101, end: 20080101
  4. PRISTIQ [Suspect]
     Route: 048
     Dates: start: 20080101, end: 20081220
  5. WELLBUTRIN XL [Concomitant]
     Indication: MAJOR DEPRESSION
     Route: 048
     Dates: start: 20080101

REACTIONS (1)
  - HYPERTENSION [None]
